FAERS Safety Report 9118630 (Version 1)
Quarter: 2013Q3

REPORT INFORMATION
  Report Type: Spontaneous
  Country: US (occurrence: None)
  Receive Date: 20130221
  Receipt Date: 20130221
  Transmission Date: 20140515
  Serious: Yes (Other)
  Sender: FDA-Public Use
  Company Number: None

PATIENT
  Age: 53 Year
  Sex: Male

DRUGS (1)
  1. CHLORAPREP FREEP ONE STEP [Suspect]

REACTIONS (3)
  - Injury [None]
  - Application site erythema [None]
  - Application site laceration [None]
